FAERS Safety Report 9555002 (Version 1)
Quarter: 2013Q3

REPORT INFORMATION
  Report Type: Spontaneous
  Country: US (occurrence: None)
  Receive Date: 20130724
  Receipt Date: 20130724
  Transmission Date: 20140515
  Serious: No
  Sender: FDA-Public Use
  Company Number: PHEH2013US006219

PATIENT
  Age: 58 Year
  Sex: Female

DRUGS (6)
  1. GILENYA (FINGOLIMOD) CAPSULE, 0.5MG [Suspect]
     Indication: MULTIPLE SCLEROSIS
     Route: 048
     Dates: start: 201208
  2. VALIUM (DIAZEPAM) [Concomitant]
  3. BACLOFEN (BACLOFEN) [Concomitant]
  4. B-COMPLEX /00003501/ (CALCIUM PANTOTHENATE, NICOTINAMIDE, PYRIDOXINE HYDROCHLORIDE, RIBOFLAVIN, THIAMINE HYDROCHLORIDE) [Concomitant]
  5. VITAMIN D (ERGOCALCIFEROL) [Concomitant]
  6. MAGNESIUM (MAGNESIUM) [Concomitant]

REACTIONS (2)
  - Palpitations [None]
  - Chest discomfort [None]
